FAERS Safety Report 22370941 (Version 1)
Quarter: 2023Q2

REPORT INFORMATION
  Report Type: Spontaneous
  Country: US (occurrence: US)
  Receive Date: 20230526
  Receipt Date: 20230526
  Transmission Date: 20230722
  Serious: Yes (Other)
  Sender: FDA-Public Use
  Company Number: US-drreddys-LIT/USA/23/0166126

PATIENT
  Age: 73 Year
  Sex: Female

DRUGS (5)
  1. TOBRAMYCIN [Suspect]
     Active Substance: TOBRAMYCIN
     Indication: Sjogren^s syndrome
  2. DOXYCYCLINE [Suspect]
     Active Substance: DOXYCYCLINE
     Indication: Sjogren^s syndrome
  3. LOTEPREDNOL [Suspect]
     Active Substance: LOTEPREDNOL
     Indication: Sjogren^s syndrome
  4. MESALAMINE [Suspect]
     Active Substance: MESALAMINE
     Indication: Sjogren^s syndrome
  5. CARBOXYMETHYLCELLULOSE SODIUM [Suspect]
     Active Substance: CARBOXYMETHYLCELLULOSE SODIUM
     Indication: Sjogren^s syndrome

REACTIONS (1)
  - Drug ineffective for unapproved indication [Unknown]
